FAERS Safety Report 19014719 (Version 3)
Quarter: 2021Q2

REPORT INFORMATION
  Report Type: Spontaneous
  Country: DE (occurrence: DE)
  Receive Date: 20210316
  Receipt Date: 20210428
  Transmission Date: 20210717
  Serious: Yes (Other)
  Sender: FDA-Public Use
  Company Number: DE-ASTRAZENECA-2021A111822

PATIENT
  Sex: Female

DRUGS (3)
  1. ESOMEPRAZOLE. [Suspect]
     Active Substance: ESOMEPRAZOLE MAGNESIUM
     Indication: GASTRITIS
     Route: 048
  2. PANTOPRAZOLE PUREN [Suspect]
     Active Substance: PANTOPRAZOLE
     Indication: GASTRITIS
     Route: 048
  3. RAMILICH COMP [Concomitant]
     Active Substance: HYDROCHLOROTHIAZIDE\RAMIPRIL
     Indication: HYPERTENSION
     Dosage: 5MG/12.5MG, ONCE A DAY
     Route: 048

REACTIONS (5)
  - Bone swelling [Not Recovered/Not Resolved]
  - Drug ineffective [Unknown]
  - Osteorrhagia [Not Recovered/Not Resolved]
  - Arthralgia [Not Recovered/Not Resolved]
  - Groin pain [Not Recovered/Not Resolved]

NARRATIVE: CASE EVENT DATE: 202009
